FAERS Safety Report 7267751-5 (Version None)
Quarter: 2011Q1

REPORT INFORMATION
  Report Type: 
  Country: None (occurrence: None)
  Receive Date: 20110201
  Receipt Date: 20110124
  Transmission Date: 20110831
  Serious: Yes (Hospitalization)
  Sender: FDA-Public Use
  Company Number: A0790176A

PATIENT
  Age: 78 Year
  Sex: Male

DRUGS (6)
  1. LISINOPRIL [Concomitant]
  2. METFORMIN HCL [Concomitant]
  3. AVANDIA [Suspect]
     Dosage: 8MG PER DAY
     Route: 048
     Dates: start: 20010426, end: 20070328
  4. ZOCOR [Concomitant]
  5. ATENOLOL [Concomitant]
  6. GLIPIZIDE [Concomitant]

REACTIONS (2)
  - MYOCARDIAL INFARCTION [None]
  - CORONARY ARTERY DISEASE [None]
